FAERS Safety Report 17716677 (Version 1)
Quarter: 2020Q2

REPORT INFORMATION
  Report Type: Spontaneous
  Country: US (occurrence: US)
  Receive Date: 20200427
  Receipt Date: 20200427
  Transmission Date: 20200714
  Serious: Yes (Hospitalization)
  Sender: FDA-Public Use
  Company Number: None

PATIENT
  Age: 81 Year
  Sex: Male

DRUGS (2)
  1. HYDROMORPHONE [HYDROMORPHONE HYDROCHLORIDE] [Suspect]
     Active Substance: HYDROMORPHONE HYDROCHLORIDE
     Indication: PAIN
     Route: 048
     Dates: start: 20050110
  2. DULOXETINE (DULOXETINE HCL 30MG CAP, EC) [Suspect]
     Active Substance: DULOXETINE HYDROCHLORIDE
     Indication: PAIN
     Route: 048
     Dates: start: 20200416, end: 20200419

REACTIONS (6)
  - Confusional state [None]
  - Adverse drug reaction [None]
  - Urinary tract infection [None]
  - Dysuria [None]
  - Chills [None]
  - Mental status changes [None]

NARRATIVE: CASE EVENT DATE: 20200419
